FAERS Safety Report 10187233 (Version 1)
Quarter: 2014Q2

REPORT INFORMATION
  Report Type: Spontaneous
  Country: DE (occurrence: DE)
  Receive Date: 20140522
  Receipt Date: 20140522
  Transmission Date: 20141212
  Serious: Yes (Hospitalization)
  Sender: FDA-Public Use
  Company Number: PHHY2014DE060093

PATIENT
  Sex: Female
  Weight: 48 kg

DRUGS (1)
  1. ZOMETA [Suspect]
     Indication: METASTASES TO BONE
     Dosage: 4 MG, EVERY 4 WEEKS
     Route: 042
     Dates: start: 20140221

REACTIONS (3)
  - General physical health deterioration [Recovered/Resolved]
  - Pain in extremity [Recovered/Resolved]
  - Leukopenia [Recovered/Resolved]
